FAERS Safety Report 6108519-2 (Version None)
Quarter: 2009Q1

REPORT INFORMATION
  Report Type: 
  Country: None (occurrence: None)
  Receive Date: 20090309
  Receipt Date: 20090303
  Transmission Date: 20090719
  Serious: Yes (Hospitalization, Other)
  Sender: FDA-Public Use
  Company Number: DE-ROXANE LABORATORIES, INC.-2009-RO-00203RO

PATIENT
  Age: 78 Year
  Sex: Male

DRUGS (8)
  1. PREDNISONE [Suspect]
     Indication: MULTIPLE MYELOMA
     Dosage: 135MG
     Dates: start: 20070501
  2. DEXAMETHASONE [Suspect]
     Indication: RENAL FAILURE ACUTE
     Dates: start: 20070301
  3. MELPHALAN [Suspect]
     Indication: MULTIPLE MYELOMA
     Dosage: 12MG
     Dates: start: 20070501
  4. LENALIDOMIDE [Suspect]
     Indication: MULTIPLE MYELOMA
     Dosage: 10MG
     Dates: start: 20070501
  5. PANTOPRAZOL [Suspect]
     Dosage: 20MG
  6. XIPAMIDE [Suspect]
     Dosage: 10MG
  7. ASPIRIN [Suspect]
     Dosage: 100MG
  8. URSODIOL [Concomitant]
     Dosage: 1500MG

REACTIONS (3)
  - CHOLANGITIS [None]
  - CHOLESTASIS [None]
  - LIGHT CHAIN DISEASE [None]
